FAERS Safety Report 10668603 (Version 1)
Quarter: 2014Q4

REPORT INFORMATION
  Report Type: Spontaneous
  Country: US (occurrence: US)
  Receive Date: 20141222
  Receipt Date: 20141222
  Transmission Date: 20150529
  Serious: No
  Sender: FDA-Public Use
  Company Number: US-009507513-1412USA005849

PATIENT
  Age: 36 Year
  Sex: Female

DRUGS (1)
  1. PROVENTIL [Suspect]
     Active Substance: ALBUTEROL
     Indication: ANTIALLERGIC THERAPY
     Dosage: 2 PUFF, AS NEEDED
     Route: 055
     Dates: start: 2013

REACTIONS (3)
  - Product quality issue [Unknown]
  - Drug dose omission [Unknown]
  - Dysgeusia [Unknown]

NARRATIVE: CASE EVENT DATE: 20141207
